FAERS Safety Report 8923312 (Version 1)
Quarter: 2012Q4

REPORT INFORMATION
  Report Type: Spontaneous
  Country: GB (occurrence: None)
  Receive Date: 20121115
  Receipt Date: 20121115
  Transmission Date: 20130627
  Serious: Yes (Other)
  Sender: FDA-Public Use
  Company Number: AUR-APL-2012-04783

PATIENT
  Age: 56 Year
  Sex: Male
  Weight: 60 kg

DRUGS (7)
  1. RIBAVIRIN [Suspect]
     Indication: HEPATITIS C
     Route: 048
     Dates: start: 20110809
  2. PEGYLATED INTERFERON [Suspect]
     Indication: HEPATITIS C
     Dosage: (180 ug,1 in 1 wk)
     Route: 058
     Dates: start: 20110809
  3. TELAPREVIR [Suspect]
     Indication: CHRONIC HEPATITIS C
     Dosage: (750 mg,3 in 1 D)
     Route: 048
     Dates: start: 20110809
  4. PIRITON [Suspect]
     Indication: PRURITUS
     Route: 048
     Dates: start: 20110905
  5. E-45 (CREAM 345) [Concomitant]
  6. METHADONE (METHADONE) [Concomitant]
  7. ZOPICLONE (ZOPLICONE) [Concomitant]

REACTIONS (11)
  - Tremor [None]
  - Tremor [None]
  - Rash [None]
  - Confusional state [None]
  - Pyrexia [None]
  - Disorientation [None]
  - Insomnia [None]
  - Haemoglobin decreased [None]
  - Platelet count decreased [None]
  - Oral candidiasis [None]
  - Lower respiratory tract infection [None]
